FAERS Safety Report 18101933 (Version 3)
Quarter: 2023Q2

REPORT INFORMATION
  Report Type: Report from Study
  Country: CA (occurrence: CA)
  Receive Date: 20200802
  Receipt Date: 20230509
  Transmission Date: 20230722
  Serious: Yes (Other)
  Sender: FDA-Public Use
  Company Number: CA-SAMSUNG BIOEPIS-SB-2020-22090

PATIENT
  Age: 48 Year
  Sex: Female
  Weight: 58 kg

DRUGS (5)
  1. RENFLEXIS [Suspect]
     Active Substance: INFLIXIMAB-ABDA
     Indication: Crohn^s disease
     Route: 042
     Dates: start: 20200114
  2. RENFLEXIS [Suspect]
     Active Substance: INFLIXIMAB-ABDA
     Dosage: UNKNOWN
     Route: 065
  3. RENFLEXIS [Suspect]
     Active Substance: INFLIXIMAB-ABDA
     Dosage: UNKNOWN
     Route: 065
  4. IMURAN [Suspect]
     Active Substance: AZATHIOPRINE
     Indication: Product used for unknown indication
     Dosage: PILLS
     Route: 065
  5. IMURAN [Suspect]
     Active Substance: AZATHIOPRINE
     Dosage: PILLS
     Route: 065

REACTIONS (7)
  - Skin cancer [Unknown]
  - Immunodeficiency [Unknown]
  - Neurodermatitis [Unknown]
  - Ovarian cyst [Unknown]
  - Cyst [Unknown]
  - Pain [Unknown]
  - Skin mass [Unknown]
